FAERS Safety Report 6647674-2 (Version None)
Quarter: 2010Q1

REPORT INFORMATION
  Report Type: 
  Country: None (occurrence: None)
  Receive Date: 20100323
  Receipt Date: 20100323
  Transmission Date: 20100710
  Serious: Yes (Hospitalization, Other)
  Sender: FDA-Public Use
  Company Number: None

PATIENT
  Age: 45 Year
  Sex: Male
  Weight: 72.5755 kg

DRUGS (2)
  1. CLONAZEPAM [Suspect]
     Indication: ANXIETY
     Dosage: 0.5 3 TIMES A DAY 3 MONTHS AUG. SEPT OCT.
  2. KLONOPIN [Suspect]
     Dosage: RPH CW2 - TCH/W/34
     Dates: start: 20070101

REACTIONS (1)
  - EPILEPSY [None]
